FAERS Safety Report 14867900 (Version 6)
Quarter: 2019Q2

REPORT INFORMATION
  Report Type: Report from Study
  Country: GB (occurrence: GB)
  Receive Date: 20180509
  Receipt Date: 20190408
  Transmission Date: 20190711
  Serious: Yes (Hospitalization, Other)
  Sender: FDA-Public Use
  Company Number: GB-BRISTOL-MYERS SQUIBB COMPANY-BMS-2018-039576

PATIENT
  Sex: Female

DRUGS (1)
  1. ABATACEPT [Suspect]
     Active Substance: ABATACEPT
     Indication: RHEUMATOID ARTHRITIS
     Dosage: 125 MG, QWK
     Route: 058
     Dates: start: 20171221

REACTIONS (11)
  - Hepatic infection [Unknown]
  - Cataract [Unknown]
  - Back pain [Unknown]
  - Intervertebral disc protrusion [Unknown]
  - Malaise [Unknown]
  - Musculoskeletal pain [Unknown]
  - Pyrexia [Unknown]
  - Pain in extremity [Unknown]
  - Pain [Not Recovered/Not Resolved]
  - Rheumatoid arthritis [Unknown]
  - Drug ineffective [Unknown]
